FAERS Safety Report 6474430-0 (Version None)
Quarter: 2009Q4

REPORT INFORMATION
  Report Type: 
  Country: None (occurrence: None)
  Receive Date: 20091204
  Receipt Date: 20091125
  Transmission Date: 20100525
  Serious: Yes (Other)
  Sender: FDA-Public Use
  Company Number: US-ELI_LILLY_AND_COMPANY-US200911007295

PATIENT
  Sex: Female

DRUGS (18)
  1. HUMULIN N [Suspect]
     Indication: DIABETES MELLITUS
     Dosage: 30 U, EACH MORNING
     Dates: start: 19890101
  2. HUMULIN N [Suspect]
     Dosage: UNK, AS NEEDED
     Dates: start: 19890101
  3. HUMULIN R [Suspect]
     Indication: DIABETES MELLITUS
     Dosage: 8 U, EACH MORNING
     Dates: start: 19890101
  4. HUMULIN R [Suspect]
     Dosage: UNK, AS NEEDED
     Dates: start: 19890101
  5. LANTUS [Concomitant]
     Dosage: UNK, EACH EVENING
  6. ALTACE [Concomitant]
  7. BONIVA [Concomitant]
  8. ASPIRIN [Concomitant]
     Dosage: 81 MG, UNK
  9. ISOSORBIDE [Concomitant]
  10. PLAVIX [Concomitant]
  11. FUROSEMIDE [Concomitant]
  12. POTASSIUM [Concomitant]
  13. PEPCID [Concomitant]
  14. LOVAZA [Concomitant]
  15. ZETIA [Concomitant]
  16. LOPRESSOR [Concomitant]
  17. MULTI-VITAMIN [Concomitant]
  18. ALPRAZOLAM [Concomitant]

REACTIONS (7)
  - BLOOD GLUCOSE DECREASED [None]
  - BLOOD GLUCOSE INCREASED [None]
  - CAROTID ARTERY OCCLUSION [None]
  - CATARACT [None]
  - DRUG INEFFECTIVE [None]
  - EYE DISORDER [None]
  - INTENTIONAL DRUG MISUSE [None]
